FAERS Safety Report 17928504 (Version 1)
Quarter: 2020Q2

REPORT INFORMATION
  Report Type: Spontaneous
  Country: PT (occurrence: PT)
  Receive Date: 20200619
  Receipt Date: 20200619
  Transmission Date: 20200714
  Serious: Yes (Death, Life-Threatening, Hospitalization, Other)
  Sender: FDA-Public Use
  Company Number: PT-AMGEN-PRTSP2020098584

PATIENT
  Age: 76 Year
  Sex: Female

DRUGS (3)
  1. TRASTUZUMAB. [Suspect]
     Active Substance: TRASTUZUMAB
     Indication: HER2 POSITIVE BREAST CANCER
     Dosage: UNK
     Route: 042
  2. CARBOPLATIN. [Suspect]
     Active Substance: CARBOPLATIN
     Indication: HER2 POSITIVE BREAST CANCER
     Dosage: UNK
     Route: 065
  3. DOCETAXEL. [Suspect]
     Active Substance: DOCETAXEL
     Indication: HER2 POSITIVE BREAST CANCER
     Dosage: UNK
     Route: 065

REACTIONS (14)
  - Abdominal tenderness [Unknown]
  - Febrile neutropenia [Fatal]
  - Clostridial infection [Fatal]
  - Intestinal ischaemia [Unknown]
  - Generalised tonic-clonic seizure [Unknown]
  - Acute kidney injury [Unknown]
  - Stomatitis [Unknown]
  - Chills [Unknown]
  - Seizure [Unknown]
  - Metabolic acidosis [Unknown]
  - Hypotension [Unknown]
  - Cardio-respiratory arrest [Fatal]
  - Nausea [Unknown]
  - Vomiting [Unknown]
